FAERS Safety Report 8546901-4 (Version None)
Quarter: 2012Q3

REPORT INFORMATION
  Report Type: 
  Country: None (occurrence: None)
  Receive Date: 20120727
  Receipt Date: 20120117
  Transmission Date: 20120928
  Serious: No
  Sender: FDA-Public Use
  Company Number: US-ASTRAZENECA-2012SE03632

PATIENT
  Sex: Female

DRUGS (2)
  1. DEPRESSION MEDICATIONS [Concomitant]
     Indication: DEPRESSION
  2. SEROQUEL XR [Suspect]
     Indication: DEPRESSION
     Dosage: 50 MG IN THE MORNING AND 300 MG IN THE EVENING
     Route: 048

REACTIONS (3)
  - DRUG DOSE OMISSION [None]
  - COMMUNICATION DISORDER [None]
  - BALANCE DISORDER [None]
